FAERS Safety Report 15574616 (Version 2)
Quarter: 2019Q1

REPORT INFORMATION
  Report Type: Spontaneous
  Country: US (occurrence: US)
  Receive Date: 20181101
  Receipt Date: 20190115
  Transmission Date: 20190417
  Serious: No
  Sender: FDA-Public Use
  Company Number: US-MYLANLABS-2018M1077236

PATIENT
  Sex: Male

DRUGS (1)
  1. ESTRADIOL. [Suspect]
     Active Substance: ESTRADIOL
     Indication: POSTMENOPAUSE
     Dosage: 0.1 %, UNK
     Route: 067

REACTIONS (2)
  - Haematospermia [Not Recovered/Not Resolved]
  - Exposure via partner [Not Recovered/Not Resolved]
